FAERS Safety Report 5234296-3 (Version None)
Quarter: 2007Q1

REPORT INFORMATION
  Report Type: 
  Country: None (occurrence: None)
  Receive Date: 20070209
  Receipt Date: 20070126
  Transmission Date: 20070707
  Serious: Yes (Other)
  Sender: FDA-Public Use
  Company Number: PHMT2007CA00508

PATIENT
  Age: 79 Year
  Sex: Female

DRUGS (4)
  1. SANDOSTATIN LAR [Suspect]
     Indication: CARCINOID SYNDROME
     Dosage: 30 MG, EVERY MONTH
     Route: 030
     Dates: start: 20060301
  2. DRUG THERAPY NOS [Concomitant]
     Dosage: CONOMITANT MEDICATIONS
  3. ANTIHYPERTENSIVE DRUGS [Concomitant]
  4. SANDOSTATIN [Suspect]
     Route: 058

REACTIONS (3)
  - NEPHROLITHIASIS [None]
  - PAIN [None]
  - VOMITING [None]
